FAERS Safety Report 9625574 (Version 1)
Quarter: 2013Q4

REPORT INFORMATION
  Report Type: Spontaneous
  Country: US (occurrence: None)
  Receive Date: 20131015
  Receipt Date: 20131015
  Transmission Date: 20140711
  Serious: No
  Sender: FDA-Public Use
  Company Number: None

PATIENT
  Sex: Female

DRUGS (1)
  1. HYDROCODONE [Suspect]
     Indication: POST-TRAUMATIC NECK SYNDROME

REACTIONS (1)
  - Drug ineffective [None]
